FAERS Safety Report 16501154 (Version 1)
Quarter: 2019Q3

REPORT INFORMATION
  Report Type: Spontaneous
  Country: US (occurrence: US)
  Receive Date: 20190628
  Receipt Date: 20190628
  Transmission Date: 20191004
  Serious: Yes (Disabling)
  Sender: FDA-Public Use
  Company Number: None

PATIENT
  Age: 70 Year
  Sex: Male
  Weight: 45 kg

DRUGS (6)
  1. PULMICORT TURBUHALER [Concomitant]
     Active Substance: BUDESONIDE
  2. ACIPHEX [Concomitant]
     Active Substance: RABEPRAZOLE SODIUM
  3. VENTOLIN [Concomitant]
     Active Substance: ALBUTEROL SULFATE
  4. ALBUTEROL. [Concomitant]
     Active Substance: ALBUTEROL
  5. REPATHA [Suspect]
     Active Substance: EVOLOCUMAB
     Indication: BLOOD CHOLESTEROL INCREASED
     Route: 058
  6. SINGULAIR [Concomitant]
     Active Substance: MONTELUKAST SODIUM

REACTIONS (3)
  - Influenza [None]
  - Back pain [None]
  - Dyspnoea [None]

NARRATIVE: CASE EVENT DATE: 20190108
